FAERS Safety Report 12971898 (Version 1)
Quarter: 2016Q4

REPORT INFORMATION
  Report Type: Spontaneous
  Country: ES (occurrence: ES)
  Receive Date: 20161124
  Receipt Date: 20161124
  Transmission Date: 20170207
  Serious: Yes (Other)
  Sender: FDA-Public Use
  Company Number: ES-BAXTER-2016BAX058863

PATIENT
  Sex: Female

DRUGS (2)
  1. TISSEEL SOLUCIONES PARA ADHESIVO TISULAR [Suspect]
     Active Substance: APROTININ\CALCIUM CHLORIDE\FIBRINOGEN HUMAN\FACTOR XIII CONCENTRATE (HUMAN)\THROMBIN
     Indication: PTERYGIUM OPERATION
     Route: 065
     Dates: start: 20161027, end: 20161027
  2. TISSEEL SOLUCIONES PARA ADHESIVO TISULAR [Suspect]
     Active Substance: APROTININ\CALCIUM CHLORIDE\FIBRINOGEN HUMAN\FACTOR XIII CONCENTRATE (HUMAN)\THROMBIN
     Indication: OFF LABEL USE

REACTIONS (5)
  - Graft complication [Unknown]
  - Eye inflammation [Unknown]
  - Wound dehiscence [Unknown]
  - Oedema [None]
  - Off label use [None]
